FAERS Safety Report 4802623-4 (Version None)
Quarter: 2005Q4

REPORT INFORMATION
  Report Type: 
  Country: None (occurrence: None)
  Receive Date: 20051014
  Receipt Date: 20050328
  Transmission Date: 20060501
  Serious: Yes (Other)
  Sender: FDA-Public Use
  Company Number: 2005049633

PATIENT
  Age: 74 Year
  Sex: Female

DRUGS (12)
  1. NEURONTIN [Suspect]
     Indication: PAIN IN EXTREMITY
     Dosage: 600 MG (300 MG, 2 IN 1 D) ORAL
     Route: 048
  2. PREDNISONE [Suspect]
     Indication: PROPHYLAXIS
     Dosage: 10 MG (10 MG, 1 IN 1 D) ORAL
     Route: 048
  3. VERAPAMIL [Concomitant]
  4. ALPRAZOLAM [Concomitant]
  5. PAROXETINE HYDROCHLORIDE [Concomitant]
  6. LEVOTHYROXINE SODIUM [Concomitant]
  7. ATENOLOL [Concomitant]
  8. TORSEMIDE [Concomitant]
  9. ESOMEPRAZOLE [Concomitant]
  10. TRAZODONE HCL [Concomitant]
  11. LISINOPRIL [Concomitant]
  12. INSULIN [Concomitant]

REACTIONS (6)
  - DIFFICULTY IN WALKING [None]
  - INFECTION [None]
  - PAIN [None]
  - RED BLOOD CELL SEDIMENTATION RATE INCREASED [None]
  - TREMOR [None]
  - WEIGHT INCREASED [None]
